FAERS Safety Report 10035788 (Version 1)
Quarter: 2014Q1

REPORT INFORMATION
  Report Type: Spontaneous
  Country: GH (occurrence: GH)
  Receive Date: 20140325
  Receipt Date: 20140325
  Transmission Date: 20141002
  Serious: Yes (Death)
  Sender: FDA-Public Use
  Company Number: GH-ASTRAZENECA-2014SE20456

PATIENT
  Age: 730 Day
  Sex: 0

DRUGS (1)
  1. MERONEM [Suspect]
     Route: 042

REACTIONS (1)
  - Jaundice [Fatal]
